FAERS Safety Report 11434042 (Version 14)
Quarter: 2022Q3

REPORT INFORMATION
  Report Type: Spontaneous
  Country: US (occurrence: US)
  Receive Date: 20150831
  Receipt Date: 20220802
  Transmission Date: 20221027
  Serious: Yes (Life-Threatening, Hospitalization, Disabling, Other)
  Sender: FDA-Public Use
  Company Number: US-PFIZER INC-2015285828

PATIENT
  Age: 69 Year
  Sex: Female
  Weight: 86 kg

DRUGS (5)
  1. RAPAMUNE [Suspect]
     Active Substance: SIROLIMUS
     Indication: Liver transplant
     Dosage: UNK
     Dates: start: 2005
  2. RAPAMUNE [Suspect]
     Active Substance: SIROLIMUS
     Dosage: 0.5 MG, DAILY
     Route: 048
     Dates: start: 20191108
  3. RAPAMUNE [Suspect]
     Active Substance: SIROLIMUS
     Dosage: 0.5 MG, 1X/DAY
     Route: 048
     Dates: start: 2005
  4. SYNTHROID [Concomitant]
     Active Substance: LEVOTHYROXINE SODIUM
     Dosage: UNK
  5. FUROSEMIDE [Concomitant]
     Active Substance: FUROSEMIDE
     Dosage: 20 MG, 2X/DAY

REACTIONS (13)
  - Gait disturbance [Unknown]
  - Ophthalmic herpes zoster [Recovering/Resolving]
  - Herpes zoster infection neurological [Recovering/Resolving]
  - Herpes zoster [Recovered/Resolved]
  - Encephalitis [Unknown]
  - Blindness [Not Recovered/Not Resolved]
  - Renal cell carcinoma recurrent [Unknown]
  - Off label use [Unknown]
  - Urinary tract infection [Unknown]
  - Balance disorder [Unknown]
  - Weight decreased [Unknown]
  - Dyspnoea [Unknown]
  - Illness [Unknown]

NARRATIVE: CASE EVENT DATE: 20110801
